FAERS Safety Report 25741540 (Version 1)
Quarter: 2025Q3

REPORT INFORMATION
  Report Type: Spontaneous
  Country: US (occurrence: None)
  Receive Date: 20250829
  Receipt Date: 20250829
  Transmission Date: 20251020
  Serious: No
  Sender: FDA-CTU
  Company Number: None

PATIENT

DRUGS (1)
  1. TERIFLUNOMIDE [Suspect]
     Active Substance: TERIFLUNOMIDE

REACTIONS (8)
  - Alcohol use [None]
  - Arthropathy [None]
  - Fall [None]
  - Memory impairment [None]
  - Mental disorder [None]
  - Tremor [None]
  - Depression [None]
  - Product dose omission in error [None]
